FAERS Safety Report 14284814 (Version 4)
Quarter: 2018Q3

REPORT INFORMATION
  Report Type: Report from Study
  Country: BE (occurrence: BE)
  Receive Date: 20171214
  Receipt Date: 20180828
  Transmission Date: 20181010
  Serious: Yes (Hospitalization, Other)
  Sender: FDA-Public Use
  Company Number: BE-ROCHE-2009406

PATIENT
  Age: 55 Year
  Sex: Male
  Weight: 73 kg

DRUGS (8)
  1. RECTOGESIC (BELGIUM) [Concomitant]
     Route: 054
  2. ATEZOLIZUMAB. [Suspect]
     Active Substance: ATEZOLIZUMAB
     Indication: RECTAL ADENOCARCINOMA
     Dosage: MOST RECENT DOSE? 18/SEP/2017
     Route: 042
     Dates: start: 20170918, end: 20171006
  3. FLUOROURACIL. [Suspect]
     Active Substance: FLUOROURACIL
     Indication: RECTAL ADENOCARCINOMA
     Dosage: MOST RECENT DOSE?22/SEP/2017?LAST INTAKE: 02/OCT/2017
     Route: 065
     Dates: start: 20170904, end: 20171006
  4. PRETERAX [Concomitant]
     Active Substance: INDAPAMIDE\PERINDOPRIL
     Route: 048
  5. DAFALGAN FORTE [Concomitant]
     Route: 048
  6. FOLINIC ACID [Concomitant]
     Active Substance: LEUCOVORIN
     Route: 065
     Dates: start: 20180124
  7. OXALIPLATIN. [Concomitant]
     Active Substance: OXALIPLATIN
     Route: 065
     Dates: start: 20180124
  8. PANTOMED (BELGIUM) [Concomitant]
     Route: 048

REACTIONS (8)
  - Platelet count decreased [Recovered/Resolved]
  - Pyrexia [Recovered/Resolved]
  - Pyrexia [Unknown]
  - Intentional product use issue [Unknown]
  - Thrombocytopenia [Recovering/Resolving]
  - Haemothorax [Recovered/Resolved]
  - Bacterial sepsis [Recovered/Resolved]
  - Off label use [Unknown]

NARRATIVE: CASE EVENT DATE: 20170918
